FAERS Safety Report 23888045 (Version 1)
Quarter: 2024Q2

REPORT INFORMATION
  Report Type: Spontaneous
  Country: PT (occurrence: None)
  Receive Date: 20240523
  Receipt Date: 20240523
  Transmission Date: 20240716
  Serious: Yes (Other)
  Sender: FDA-Public Use
  Company Number: 2024A114112

PATIENT
  Age: 63 Year
  Sex: Female

DRUGS (7)
  1. TAGRISSO [Suspect]
     Active Substance: OSIMERTINIB
     Indication: Lung adenocarcinoma
     Dosage: 1 COMP/DIA
     Route: 048
     Dates: start: 20231212
  2. GLYCOPYRROLATE\INDACATEROL\MOMETASONE FUROATE [Concomitant]
     Active Substance: GLYCOPYRROLATE\INDACATEROL\MOMETASONE FUROATE
     Dosage: ENERZAIR BREEZHALER?? 114 MCG/ 46 MCG/136 MCG MORNING BEFORE LEAVING (PNEUMOLOGY)
  3. PANTOPRAZOLE SODIUM [Concomitant]
     Active Substance: PANTOPRAZOLE SODIUM
     Dosage: PANTOPRAZOLE 40 MG - 1 ID ON AN EMPTY STOMACH (DOCTOR OF FAMILY)
  4. FLUTICASONE FUROATE [Concomitant]
     Active Substance: FLUTICASONE FUROATE
     Dosage: SUSPENSION FOR NASAL SPRAY
  5. BERODUAL PA [Concomitant]
     Dosage: BERODUAL PA?? IPRATROPIUM BROMIDE + FENOTEROL - SOS
  6. ESCITALOPRAM [Concomitant]
     Active Substance: ESCITALOPRAM OXALATE
     Dosage: ESCITALOPRAM 20 MG - 1 DAY ON AN EMPTY STOMACH (DOCTOR OF FAMILY)
  7. MONTELUKAST [Concomitant]
     Active Substance: MONTELUKAST SODIUM
     Dosage: MONTELUKAST 10 MG - 1 DOSE AT BEDTIME (PNEUMOLOGIAONC)

REACTIONS (7)
  - Oral mucosal erythema [Recovering/Resolving]
  - Haemoptysis [Recovered/Resolved]
  - Oral discomfort [Recovering/Resolving]
  - Lip erythema [Recovering/Resolving]
  - Haematoma [Not Recovered/Not Resolved]
  - Oral discomfort [Recovering/Resolving]
  - Diarrhoea [Not Recovered/Not Resolved]

NARRATIVE: CASE EVENT DATE: 20240126
